FAERS Safety Report 9717226 (Version 2)
Quarter: 2013Q4

REPORT INFORMATION
  Report Type: Report from Study
  Country: US (occurrence: US)
  Receive Date: 20131127
  Receipt Date: 20131202
  Transmission Date: 20140711
  Serious: Yes (Hospitalization)
  Sender: FDA-Public Use
  Company Number: US-ABBVIE-13P-163-1171841-00

PATIENT
  Sex: Male
  Weight: 122.58 kg

DRUGS (2)
  1. HUMIRA [Suspect]
     Indication: COLITIS ULCERATIVE
  2. APRISO [Concomitant]
     Indication: COLITIS ULCERATIVE

REACTIONS (8)
  - Coronary artery occlusion [Unknown]
  - Atrial fibrillation [Unknown]
  - Palpitations [Unknown]
  - Haematochezia [Not Recovered/Not Resolved]
  - Mucous stools [Not Recovered/Not Resolved]
  - Faeces soft [Not Recovered/Not Resolved]
  - Abdominal pain [Not Recovered/Not Resolved]
  - Heart rate increased [Recovered/Resolved]
